FAERS Safety Report 25598074 (Version 1)
Quarter: 2025Q3

REPORT INFORMATION
  Report Type: Spontaneous
  Country: US (occurrence: US)
  Receive Date: 20250723
  Receipt Date: 20250723
  Transmission Date: 20251021
  Serious: Yes (Life-Threatening, Hospitalization)
  Sender: AMGEN
  Company Number: US-AMGEN-USASP2025140141

PATIENT
  Age: 52 Year
  Sex: Female

DRUGS (4)
  1. PREDNISONE [Suspect]
     Active Substance: PREDNISONE
     Indication: Encephalitis
     Route: 065
  2. PREDNISONE [Suspect]
     Active Substance: PREDNISONE
     Route: 065
  3. AZATHIOPRINE [Concomitant]
     Active Substance: AZATHIOPRINE
  4. PYRIDOSTIGMINE [Concomitant]
     Active Substance: PYRIDOSTIGMINE

REACTIONS (11)
  - Aggression [Recovering/Resolving]
  - Agitation [Recovering/Resolving]
  - CSF protein increased [Unknown]
  - Asthenia [Unknown]
  - Gait disturbance [Unknown]
  - Cough [Unknown]
  - Sputum increased [Unknown]
  - Eye pain [Unknown]
  - Vision blurred [Unknown]
  - Off label use [Unknown]
  - Headache [Unknown]
